FAERS Safety Report 10306538 (Version 2)
Quarter: 2014Q3

REPORT INFORMATION
  Report Type: Spontaneous
  Country: IL (occurrence: IL)
  Receive Date: 20140715
  Receipt Date: 20140720
  Transmission Date: 20150326
  Serious: Yes (Hospitalization, Other)
  Sender: FDA-Public Use
  Company Number: IL-009507513-1407ISR006030

PATIENT
  Sex: Male

DRUGS (1)
  1. JANUET [Suspect]
     Active Substance: METFORMIN HYDROCHLORIDE\SITAGLIPTIN PHOSPHATE
     Indication: TYPE 2 DIABETES MELLITUS
     Dosage: UNK
     Route: 048
     Dates: start: 2012

REACTIONS (3)
  - Condition aggravated [Unknown]
  - Cholangiocarcinoma [Unknown]
  - Hepatitis [Unknown]

NARRATIVE: CASE EVENT DATE: 20140626
